FAERS Safety Report 19238765 (Version 3)
Quarter: 2022Q2

REPORT INFORMATION
  Report Type: Report from Study
  Country: CZ (occurrence: CZ)
  Receive Date: 20210510
  Receipt Date: 20220418
  Transmission Date: 20220721
  Serious: Yes (Other)
  Sender: FDA-Public Use
  Company Number: CZ-TAKEDA-2016BLT002458

PATIENT
  Age: 2 Year
  Sex: Male
  Weight: 13.605 kg

DRUGS (19)
  1. ADVATE [Suspect]
     Active Substance: ANTIHEMOPHILIC FACTOR, HUMAN RECOMBINANT
     Indication: Prophylaxis
     Dosage: 250 INTERNATIONAL UNIT
     Route: 042
  2. ADVATE [Suspect]
     Active Substance: ANTIHEMOPHILIC FACTOR, HUMAN RECOMBINANT
     Indication: Prophylaxis
     Dosage: 250 INTERNATIONAL UNIT
     Route: 042
  3. ADVATE [Suspect]
     Active Substance: ANTIHEMOPHILIC FACTOR, HUMAN RECOMBINANT
     Indication: Prophylaxis
     Dosage: 250 INTERNATIONAL UNIT
     Route: 042
  4. ADVATE [Suspect]
     Active Substance: ANTIHEMOPHILIC FACTOR, HUMAN RECOMBINANT
     Dosage: 250 INTERNATIONAL UNIT, QOD
     Route: 042
  5. ADVATE [Suspect]
     Active Substance: ANTIHEMOPHILIC FACTOR, HUMAN RECOMBINANT
     Dosage: 250 INTERNATIONAL UNIT, QOD
     Route: 042
  6. ADVATE [Suspect]
     Active Substance: ANTIHEMOPHILIC FACTOR, HUMAN RECOMBINANT
     Dosage: 250 INTERNATIONAL UNIT, QOD
     Route: 042
  7. ADVATE [Suspect]
     Active Substance: ANTIHEMOPHILIC FACTOR, HUMAN RECOMBINANT
     Dosage: 125 INTERNATIONAL UNIT
     Route: 042
  8. ADVATE [Suspect]
     Active Substance: ANTIHEMOPHILIC FACTOR, HUMAN RECOMBINANT
     Dosage: 125 INTERNATIONAL UNIT
     Route: 042
  9. ADVATE [Suspect]
     Active Substance: ANTIHEMOPHILIC FACTOR, HUMAN RECOMBINANT
     Dosage: 125 INTERNATIONAL UNIT
     Route: 042
  10. AKTIFERRIN COMPOS. [Concomitant]
     Indication: Iron deficiency anaemia
     Dosage: 20 INTERNATIONAL UNIT, BID
     Route: 065
     Dates: start: 20160708
  11. CHOLECALCIFEROL [Concomitant]
     Active Substance: CHOLECALCIFEROL
     Indication: Rickets
     Dosage: 1000 INTERNATIONAL UNIT, QD
     Route: 065
     Dates: start: 20160215
  12. CUVITRU [Concomitant]
     Active Substance: HUMAN IMMUNOGLOBULIN G
     Indication: Hypogammaglobulinaemia
     Dosage: 2 GRAM, Q2WEEKS
     Route: 065
     Dates: start: 20191016
  13. CVL [Concomitant]
     Indication: Central venous pressure abnormal
     Dosage: UNK UNK, SINGLE
     Route: 065
     Dates: start: 20180710, end: 20180710
  14. ETHAMSYLATE [Concomitant]
     Active Substance: ETHAMSYLATE
     Indication: Haemorrhage
     Dosage: 75 MILLIGRAM, Q6HR
     Route: 065
     Dates: start: 20160413, end: 20160416
  15. FEIBA NF [Concomitant]
     Active Substance: ANTI-INHIBITOR COAGULANT COMPLEX
     Indication: Haemorrhage
     Dosage: 500 INTERNATIONAL UNIT, BID
     Route: 065
     Dates: start: 20160413, end: 20160421
  16. MALTOFER VIT [Concomitant]
     Indication: Iron deficiency anaemia
     Dosage: 2.5 MILLILITER, QD
     Route: 065
     Dates: start: 20180124
  17. Pamba [Concomitant]
     Indication: Haemorrhage
     Dosage: 12.5 MILLIGRAM, TID
     Route: 065
     Dates: start: 20160413, end: 20160415
  18. PYRIDOXINE [Concomitant]
     Active Substance: PYRIDOXINE
     Indication: Iron deficiency anaemia
     Dosage: 10 MILLIGRAM, QD
     Route: 065
     Dates: start: 20160708
  19. SUMETROLIM SIR [Concomitant]
     Indication: Hypogammaglobulinaemia
     Dosage: 240 MILLIGRAM, BID
     Route: 065
     Dates: start: 20181217

REACTIONS (1)
  - Factor VIII inhibition [Recovered/Resolved]

NARRATIVE: CASE EVENT DATE: 20160310
